FAERS Safety Report 4710959-0 (Version None)
Quarter: 2005Q3

REPORT INFORMATION
  Report Type: 
  Country: None (occurrence: None)
  Receive Date: 20050711
  Receipt Date: 20050615
  Transmission Date: 20060218
  Serious: Yes (Death)
  Sender: FDA-Public Use
  Company Number: PHBS2005JP08530

PATIENT
  Age: 13 Year
  Sex: Male
  Weight: 20 kg

DRUGS (4)
  1. NEORAL [Suspect]
     Indication: LIVER TRANSPLANT
     Route: 048
  2. TEGRETOL [Suspect]
     Indication: CONVULSION
     Dosage: 400 MG/DAY
     Route: 048
     Dates: start: 19970930, end: 20010623
  3. SOLU-MEDROL [Concomitant]
     Indication: LIVER TRANSPLANT
     Dosage: UNK, UNK
     Dates: start: 19950101, end: 19990101
  4. CYCLOSPORINE [Concomitant]

REACTIONS (3)
  - ALPHA 1 FOETOPROTEIN INCREASED [None]
  - HEPATIC NEOPLASM MALIGNANT RECURRENT [None]
  - METASTASES TO LYMPH NODES [None]
